FAERS Safety Report 6678869-X (Version None)
Quarter: 2010Q2

REPORT INFORMATION
  Report Type: 
  Country: None (occurrence: None)
  Receive Date: 20100412
  Receipt Date: 20100412
  Transmission Date: 20101027
  Serious: No
  Sender: FDA-Public Use
  Company Number: None

PATIENT
  Age: 53 Year
  Sex: Female
  Weight: 63.5036 kg

DRUGS (1)
  1. ATENOLOL [Suspect]
     Indication: OSTEOPENIA
     Dosage: 150MG 1/MONTH PO
     Route: 048
     Dates: start: 20100401, end: 20100401

REACTIONS (9)
  - ARTHRALGIA [None]
  - BONE PAIN [None]
  - DRUG EFFECT PROLONGED [None]
  - FATIGUE [None]
  - FEELING ABNORMAL [None]
  - GAIT DISTURBANCE [None]
  - JOINT SWELLING [None]
  - MYALGIA [None]
  - PYREXIA [None]
